FAERS Safety Report 7989636-9 (Version None)
Quarter: 2011Q4

REPORT INFORMATION
  Report Type: 
  Country: None (occurrence: None)
  Receive Date: 20111215
  Receipt Date: 20111130
  Transmission Date: 20120403
  Serious: Yes (Other)
  Sender: FDA-Public Use
  Company Number: 2011SGNOO293

PATIENT
  Age: 55 Year
  Sex: Male

DRUGS (1)
  1. ADCETRIS [Suspect]
     Indication: LYMPHOMA
     Dates: start: 20110101, end: 20110101

REACTIONS (1)
  - CUTANEOUS VASCULITIS [None]
